FAERS Safety Report 16243069 (Version 1)
Quarter: 2019Q2

REPORT INFORMATION
  Report Type: Spontaneous
  Country: US (occurrence: US)
  Receive Date: 20190426
  Receipt Date: 20190426
  Transmission Date: 20190711
  Serious: No
  Sender: FDA-Public Use
  Company Number: US-ASTRAZENECA-2019SE51785

PATIENT
  Age: 49 Year
  Sex: Female
  Weight: 92.5 kg

DRUGS (3)
  1. BYDUREON [Suspect]
     Active Substance: EXENATIDE
     Indication: TYPE 2 DIABETES MELLITUS
     Dosage: UNKNOWN, SDT
     Route: 065
     Dates: start: 2013, end: 2015
  2. TRULICITY [Concomitant]
     Active Substance: DULAGLUTIDE
     Dates: start: 2015
  3. BYDUREON [Suspect]
     Active Substance: EXENATIDE
     Indication: TYPE 2 DIABETES MELLITUS
     Dosage: PEN
     Route: 058
     Dates: start: 2017

REACTIONS (5)
  - Back pain [Recovered/Resolved]
  - Glycosylated haemoglobin increased [Unknown]
  - Injection site mass [Recovered/Resolved]
  - Therapy cessation [Unknown]
  - Injection site pruritus [Unknown]

NARRATIVE: CASE EVENT DATE: 2013
